FAERS Safety Report 25707931 (Version 1)
Quarter: 2025Q3

REPORT INFORMATION
  Report Type: Spontaneous
  Country: TW (occurrence: TW)
  Receive Date: 20250820
  Receipt Date: 20250820
  Transmission Date: 20251021
  Serious: Yes (Hospitalization, Other)
  Sender: ASTELLAS
  Company Number: TW-ASTELLAS-2025-AER-039834

PATIENT

DRUGS (2)
  1. PROGRAF [Suspect]
     Active Substance: TACROLIMUS
     Indication: Prophylaxis against transplant rejection
     Dosage: 3DF OF 5MG TWICE A DAY
     Route: 048
  2. PROGRAF [Suspect]
     Active Substance: TACROLIMUS
     Indication: Prophylaxis against transplant rejection
     Dosage: 3DF OF 1MG TWICE A DAY
     Route: 048

REACTIONS (6)
  - Renal injury [Unknown]
  - Immunosuppressant drug level increased [Recovered/Resolved with Sequelae]
  - Malaise [Unknown]
  - Product dispensing error [Recovered/Resolved with Sequelae]
  - Incorrect dose administered [Recovered/Resolved with Sequelae]
  - Product packaging confusion [Unknown]
